FAERS Safety Report 20623630 (Version 1)
Quarter: 2022Q1

REPORT INFORMATION
  Report Type: Spontaneous
  Country: US (occurrence: None)
  Receive Date: 20220322
  Receipt Date: 20220322
  Transmission Date: 20220423
  Serious: No
  Sender: FDA-Public Use
  Company Number: None

PATIENT
  Age: 61 Year
  Sex: Female
  Weight: 59.85 kg

DRUGS (2)
  1. ESTRADIOL TRANSDERMAL SYSTEM [Suspect]
     Active Substance: ESTRADIOL
     Indication: Hormone replacement therapy
     Dosage: OTHER QUANTITY : 1 PATCH(ES);?OTHER FREQUENCY : WEEK;?
     Route: 062
     Dates: start: 20220124, end: 20220226
  2. lorazapam .05mg [Concomitant]

REACTIONS (5)
  - Breast swelling [None]
  - Breast tenderness [None]
  - Crying [None]
  - Nipple disorder [None]
  - Therapy cessation [None]

NARRATIVE: CASE EVENT DATE: 20220301
